FAERS Safety Report 22064384 (Version 1)
Quarter: 2023Q1

REPORT INFORMATION
  Report Type: Spontaneous
  Country: GB (occurrence: GB)
  Receive Date: 20230306
  Receipt Date: 20230306
  Transmission Date: 20230417
  Serious: Yes (Other)
  Sender: FDA-Public Use
  Company Number: None

PATIENT
  Age: 32 Year
  Sex: Female
  Weight: 104 kg

DRUGS (4)
  1. DOCETAXEL [Suspect]
     Active Substance: DOCETAXEL
     Dosage: 20MG/2ML
     Dates: start: 20220803
  2. PENICILLIN V [Concomitant]
     Active Substance: PENICILLIN V
     Dosage: 2 DF, 4X/DAY
     Dates: start: 20221220, end: 20221225
  3. TAMOXIFEN [Concomitant]
     Active Substance: TAMOXIFEN
     Dosage: 1 DF, 1X/DAY -AS REQUESTED BY ONCOLOGIST
     Dates: start: 20230203
  4. ZOLADEX [Concomitant]
     Active Substance: GOSERELIN ACETATE
     Dosage: 1 DF, MONTHLY
     Route: 057
     Dates: start: 20221130, end: 20221201

REACTIONS (4)
  - Back pain [Unknown]
  - Flushing [Unknown]
  - Erythema [Unknown]
  - Chest discomfort [Unknown]
